FAERS Safety Report 9554404 (Version 1)
Quarter: 2013Q3

REPORT INFORMATION
  Report Type: Spontaneous
  Country: DK (occurrence: DE)
  Receive Date: 20130925
  Receipt Date: 20130925
  Transmission Date: 20140515
  Serious: Yes (Hospitalization, Congenital Anomaly)
  Sender: FDA-Public Use
  Company Number: DE-FRI-1000049037

PATIENT
  Age: 1 Day
  Sex: Male
  Weight: 3.4 kg

DRUGS (4)
  1. ESCITALOPRAM [Suspect]
     Indication: DEPRESSION
     Dosage: 10 MG
     Route: 064
  2. EDRONAX [Suspect]
     Indication: DEPRESSION
     Dosage: 4 MG
     Route: 064
  3. DICLOFENAC [Concomitant]
     Indication: BACK PAIN
     Route: 064
  4. FOLIC ACID [Concomitant]
     Indication: PROPHYLAXIS OF NEURAL TUBE DEFECT
     Dosage: 0.8 MG
     Route: 064

REACTIONS (4)
  - Atrial septal defect [Unknown]
  - Feeding disorder neonatal [Recovered/Resolved]
  - Urinary tract infection [Recovered/Resolved]
  - Foetal exposure during pregnancy [Unknown]
